FAERS Safety Report 25973754 (Version 1)
Quarter: 2025Q4

REPORT INFORMATION
  Report Type: Spontaneous
  Country: EU (occurrence: EU)
  Receive Date: 20251029
  Receipt Date: 20251029
  Transmission Date: 20260118
  Serious: Yes (Death, Hospitalization, Other)
  Sender: AUROBINDO
  Company Number: EU-009507513-2304075

PATIENT
  Age: 62 Year
  Sex: Female

DRUGS (6)
  1. CARBOPLATIN [Suspect]
     Active Substance: CARBOPLATIN
     Indication: Cervix carcinoma stage III
     Dosage: UNK (C2)
     Route: 065
     Dates: start: 20250422
  2. KEYTRUDA [Suspect]
     Active Substance: PEMBROLIZUMAB
     Indication: Cervix carcinoma stage III
     Dosage: UNK (C1)
     Route: 065
     Dates: start: 20250416, end: 20250416
  3. KEYTRUDA [Suspect]
     Active Substance: PEMBROLIZUMAB
     Dosage: UNK
     Route: 065
     Dates: start: 20250506, end: 20250506
  4. CISPLATIN [Suspect]
     Active Substance: CISPLATIN
     Indication: Cervix carcinoma stage III
     Dosage: UNK (C1)
     Route: 065
     Dates: start: 20250416, end: 20250416
  5. CISPLATIN [Suspect]
     Active Substance: CISPLATIN
     Dosage: UNK (C3)
     Route: 065
     Dates: start: 20250429, end: 20250429
  6. CISPLATIN [Suspect]
     Active Substance: CISPLATIN
     Dosage: UNK (C4)
     Route: 065
     Dates: start: 20250506, end: 20250506

REACTIONS (16)
  - Toxic encephalopathy [Fatal]
  - Acute kidney injury [Unknown]
  - Acute pulmonary oedema [Unknown]
  - Cerebral ischaemia [Unknown]
  - Urinary tract infection [Unknown]
  - Renal impairment [Unknown]
  - Urine odour abnormal [Unknown]
  - Radiation injury [Unknown]
  - Diarrhoea [Unknown]
  - General physical health deterioration [Unknown]
  - Metabolic acidosis [Unknown]
  - Dehydration [Unknown]
  - Lumbar puncture [Unknown]
  - Nuchal rigidity [Unknown]
  - Thrombocytopenia [Unknown]
  - Inappropriate schedule of product administration [Unknown]

NARRATIVE: CASE EVENT DATE: 20250101
